FAERS Safety Report 16721678 (Version 2)
Quarter: 2019Q3

REPORT INFORMATION
  Report Type: Spontaneous
  Country: JP (occurrence: JP)
  Receive Date: 20190820
  Receipt Date: 20190823
  Transmission Date: 20191005
  Serious: Yes (Death, Life-Threatening, Other)
  Sender: FDA-Public Use
  Company Number: JP-SAKK-2019SA223464AA

PATIENT
  Age: 82 Year
  Sex: Male
  Weight: 50.35 kg

DRUGS (8)
  1. PAREPLUS [Concomitant]
     Active Substance: AMINO ACIDS\DEXTROSE\ELECTROLYTES NOS\VITAMINS
     Indication: PRODUCT USED FOR UNKNOWN INDICATION
     Dosage: UNK
     Route: 065
     Dates: start: 20190726, end: 20190727
  2. CEFTRIAXONE SODIUM. [Concomitant]
     Active Substance: CEFTRIAXONE SODIUM
     Indication: PRODUCT USED FOR UNKNOWN INDICATION
     Dosage: UNK
     Route: 042
     Dates: start: 20190628, end: 20190726
  3. CLAFORAN [Suspect]
     Active Substance: CEFOTAXIME SODIUM
     Indication: CHOLECYSTITIS ACUTE
     Dosage: 0.5 G, QID
     Route: 041
     Dates: start: 20190726, end: 20190729
  4. SOLACET D [Concomitant]
     Indication: PRODUCT USED FOR UNKNOWN INDICATION
     Dosage: DAILY DOSE: 1 TO 4 BAGS
     Route: 065
     Dates: start: 20190628, end: 20190807
  5. URIEF [Concomitant]
     Active Substance: SILODOSIN
     Indication: PRODUCT USED FOR UNKNOWN INDICATION
     Dosage: UNK
     Route: 048
     Dates: start: 20190628, end: 20190807
  6. TAKECAB [Concomitant]
     Active Substance: VONOPRAZAN FUMURATE
     Indication: PRODUCT USED FOR UNKNOWN INDICATION
     Dosage: UNK
     Route: 048
     Dates: start: 20190701, end: 20190807
  7. TALION [BEPOTASTINE BESILATE] [Concomitant]
     Active Substance: BEPOTASTINE BESYLATE
     Indication: PRODUCT USED FOR UNKNOWN INDICATION
     Dosage: UNK
     Route: 048
     Dates: start: 20190715, end: 20190807
  8. LIXIANA OD [Concomitant]
     Active Substance: EDOXABAN TOSYLATE
     Indication: PRODUCT USED FOR UNKNOWN INDICATION
     Route: 048

REACTIONS (3)
  - Acute hepatic failure [Fatal]
  - General physical health deterioration [Unknown]
  - Lymphocyte morphology abnormal [Unknown]

NARRATIVE: CASE EVENT DATE: 20190727
